FAERS Safety Report 16989072 (Version 2)
Quarter: 2019Q4

REPORT INFORMATION
  Report Type: Report from Study
  Country: PK (occurrence: PK)
  Receive Date: 20191104
  Receipt Date: 20191217
  Transmission Date: 20200122
  Serious: Yes (Death, Hospitalization)
  Sender: FDA-Public Use
  Company Number: NVSC2019PK022898

PATIENT
  Age: 25 Year
  Sex: Male
  Weight: 56 kg

DRUGS (1)
  1. TASIGNA [Suspect]
     Active Substance: NILOTINIB
     Indication: CHRONIC MYELOID LEUKAEMIA
     Dosage: 200 MG, BID (2 OD IN MORNING; 1 OD IN EVENING)
     Route: 048
     Dates: start: 20190401

REACTIONS (3)
  - Death [Fatal]
  - Fall [Unknown]
  - Haematemesis [Unknown]

NARRATIVE: CASE EVENT DATE: 20190606
